FAERS Safety Report 10455856 (Version 1)
Quarter: 2014Q3

REPORT INFORMATION
  Report Type: Spontaneous
  Country: US (occurrence: None)
  Receive Date: 20140915
  Receipt Date: 20140915
  Transmission Date: 20150326
  Serious: No
  Sender: FDA-Public Use
  Company Number: None

PATIENT
  Sex: Female

DRUGS (1)
  1. AMOXICILLIN. [Suspect]
     Active Substance: AMOXICILLIN

REACTIONS (3)
  - Drug hypersensitivity [None]
  - Documented hypersensitivity to administered drug [None]
  - Drug dispensing error [None]

NARRATIVE: CASE EVENT DATE: 2014
